FAERS Safety Report 15069611 (Version 1)
Quarter: 2018Q2

REPORT INFORMATION
  Report Type: Spontaneous
  Country: US (occurrence: US)
  Receive Date: 20180626
  Receipt Date: 20180626
  Transmission Date: 20180711
  Serious: No
  Sender: FDA-Public Use
  Company Number: US-AMGEN-USASP2011068383

PATIENT
  Age: 63 Year
  Sex: Female
  Weight: 49.89 kg

DRUGS (13)
  1. NEULASTA [Suspect]
     Active Substance: PEGFILGRASTIM
     Indication: CHEMOTHERAPY
     Dosage: 6 MG, Q3WK
     Route: 058
     Dates: start: 20111202
  2. CYTOXAN [Suspect]
     Active Substance: CYCLOPHOSPHAMIDE
     Dosage: UNK
     Dates: start: 20111130
  3. VITAMIN C [Concomitant]
     Active Substance: ASCORBIC ACID
  4. VITAMIN E                          /00110501/ [Concomitant]
     Active Substance: TOCOPHEROL
  5. LEVOXINE [Concomitant]
     Active Substance: LEVOTHYROXINE SODIUM
     Dosage: 112 MUG, UNK
  6. MELATONIN [Concomitant]
     Active Substance: MELATONIN
  7. CALCIUM + VITAMIN D [Concomitant]
     Active Substance: CALCIUM\VITAMIN D
  8. PERCOCET                           /00446701/ [Concomitant]
     Active Substance: ACETAMINOPHEN\OXYCODONE HYDROCHLORIDE\OXYCODONE TEREPHTHALATE
  9. VINCRISTINE [Suspect]
     Active Substance: VINCRISTINE
     Dosage: UNK
     Dates: start: 20111130
  10. ALEVE [Concomitant]
     Active Substance: NAPROXEN SODIUM
  11. ADRIAMYCIN [Suspect]
     Active Substance: DOXORUBICIN HYDROCHLORIDE
     Dosage: UNK
     Dates: start: 20111130
  12. RITUXAN [Concomitant]
     Active Substance: RITUXIMAB
     Dosage: UNK
     Dates: start: 20111120
  13. PRILOSEC [Concomitant]
     Active Substance: OMEPRAZOLE MAGNESIUM
     Dosage: 20 MG, UNK

REACTIONS (6)
  - Pain in jaw [Recovering/Resolving]
  - Influenza like illness [Recovering/Resolving]
  - Oropharyngeal pain [Recovering/Resolving]
  - Bone pain [Recovering/Resolving]
  - Mastication disorder [Recovering/Resolving]
  - Myalgia [Recovering/Resolving]
